FAERS Safety Report 14948084 (Version 18)
Quarter: 2020Q1

REPORT INFORMATION
  Report Type: Report from Study
  Country: MY (occurrence: MY)
  Receive Date: 20180529
  Receipt Date: 20200323
  Transmission Date: 20200409
  Serious: Yes (Other)
  Sender: FDA-Public Use
  Company Number: PHHY2018MY048298

PATIENT
  Age: 39 Year
  Sex: Female

DRUGS (11)
  1. VOTRIENT [Suspect]
     Active Substance: PAZOPANIB HYDROCHLORIDE
     Dosage: 800 OT, UNK
     Route: 048
     Dates: start: 20181122, end: 20181218
  2. GLYCERIN. [Concomitant]
     Active Substance: GLYCERIN
     Indication: RENAL CELL CARCINOMA
     Dosage: 1 OT, UNK
     Route: 065
     Dates: start: 20180222
  3. ASCORBIC ACID. [Concomitant]
     Active Substance: ASCORBIC ACID
     Indication: IRON DEFICIENCY
     Dosage: 100 OT
     Route: 048
     Dates: start: 20190727
  4. VOTRIENT [Suspect]
     Active Substance: PAZOPANIB HYDROCHLORIDE
     Dosage: 400 MG, UNK
     Route: 048
  5. PAPASE [Concomitant]
     Active Substance: PAPAIN
     Indication: SWELLING
     Dosage: 1 OT
     Route: 048
     Dates: start: 20190423, end: 20190428
  6. NEUROBION [Concomitant]
     Active Substance: CYANOCOBALAMIN\PYRIDOXINE\THIAMINE
     Indication: RENAL CELL CARCINOMA
     Dosage: 1 OT, UNK
     Route: 048
     Dates: start: 20180222
  7. DIFFLAM [Concomitant]
     Active Substance: BENZYDAMINE HYDROCHLORIDE
     Indication: RENAL CELL CARCINOMA
     Dosage: 1 OT, UNK
     Route: 050
     Dates: start: 20180222
  8. RANITIDINE. [Concomitant]
     Active Substance: RANITIDINE
     Indication: PRODUCT USED FOR UNKNOWN INDICATION
     Dosage: 150 OT
     Route: 048
     Dates: start: 20190414, end: 20190420
  9. VOTRIENT [Suspect]
     Active Substance: PAZOPANIB HYDROCHLORIDE
     Indication: RENAL CELL CARCINOMA
     Dosage: 400 OT, UNK
     Route: 048
     Dates: start: 20180207
  10. VOTRIENT [Suspect]
     Active Substance: PAZOPANIB HYDROCHLORIDE
     Dosage: 600 OT, UNK
     Route: 048
     Dates: start: 20180426, end: 20181121
  11. GLYCERIN. [Concomitant]
     Active Substance: GLYCERIN
     Indication: MUCOSAL INFLAMMATION
     Dosage: 1 OT, UNK
     Route: 065
     Dates: start: 20180313, end: 20180327

REACTIONS (10)
  - Neuropathy peripheral [Recovered/Resolved]
  - Tumour associated fever [Recovered/Resolved]
  - Hyponatraemia [Recovered/Resolved]
  - Neuropathy peripheral [Recovering/Resolving]
  - Neuropathy peripheral [Recovered/Resolved]
  - Pneumonia [Recovered/Resolved]
  - Stomatitis [Recovered/Resolved]
  - Anaemia [Not Recovered/Not Resolved]
  - Cellulitis [Recovered/Resolved]
  - Flank pain [Recovered/Resolved]

NARRATIVE: CASE EVENT DATE: 201802
